FAERS Safety Report 11745206 (Version 3)
Quarter: 2021Q2

REPORT INFORMATION
  Report Type: Other
  Country: CA (occurrence: CA)
  Receive Date: 20151117
  Receipt Date: 20210429
  Transmission Date: 20210716
  Serious: Yes (Other)
  Sender: FDA-Public Use
  Company Number: CA-ROCHE-1612534

PATIENT
  Age: 81 Year
  Sex: Male

DRUGS (11)
  1. ERIVEDGE [Suspect]
     Active Substance: VISMODEGIB
     Indication: BASAL CELL CARCINOMA
     Route: 048
     Dates: start: 201409, end: 201505
  2. ERIVEDGE [Suspect]
     Active Substance: VISMODEGIB
     Route: 048
     Dates: start: 201511, end: 201605
  3. ATENOL [Concomitant]
     Active Substance: ATENOLOL
  4. ELIQUIS [Concomitant]
     Active Substance: APIXABAN
  5. MYLAN NITRO [Concomitant]
     Active Substance: NITROGLYCERIN
  6. PANTOPRAZOLE [Concomitant]
     Active Substance: PANTOPRAZOLE
  7. METFORMIN [Concomitant]
     Active Substance: METFORMIN HYDROCHLORIDE
  8. RAMIPRIL. [Concomitant]
     Active Substance: RAMIPRIL
  9. ERIVEDGE [Suspect]
     Active Substance: VISMODEGIB
     Route: 048
     Dates: start: 201711, end: 202012
  10. AMLOPINE [Concomitant]
     Active Substance: AMLODIPINE BESYLATE
  11. ATORVASTIN [Concomitant]
     Active Substance: ATORVASTATIN

REACTIONS (6)
  - Muscle spasms [Recovered/Resolved]
  - Ageusia [Unknown]
  - Skin lesion [Not Recovered/Not Resolved]
  - Renal disorder [Unknown]
  - Muscle spasms [Unknown]
  - Ageusia [Recovering/Resolving]

NARRATIVE: CASE EVENT DATE: 201506
